FAERS Safety Report 6428005-X (Version None)
Quarter: 2009Q4

REPORT INFORMATION
  Report Type: 
  Country: None (occurrence: None)
  Receive Date: 20091105
  Receipt Date: 20091027
  Transmission Date: 20100525
  Serious: Yes (Other)
  Sender: FDA-Public Use
  Company Number: FR-ROCHE-663893

PATIENT
  Age: 81 Year
  Sex: Male

DRUGS (4)
  1. METHOXY POLYETHYLENE GLYCOL-EPOETIN BETA [Suspect]
     Dosage: FREQUENCY; ONCE
     Route: 065
     Dates: start: 20090722, end: 20090722
  2. EPOETIN BETA [Suspect]
     Dosage: INDICATION; WEGNER'S DISEASE
     Route: 065
  3. EPOETIN BETA [Suspect]
     Route: 065
     Dates: start: 20090812, end: 20090901
  4. ENDOXAN [Concomitant]

REACTIONS (4)
  - HEADACHE [None]
  - HYPERTENSION [None]
  - LEUKOCYTOSIS [None]
  - THROMBOCYTOSIS [None]
